FAERS Safety Report 4819804-6 (Version None)
Quarter: 2005Q4

REPORT INFORMATION
  Report Type: 
  Country: None (occurrence: None)
  Receive Date: 20051102
  Receipt Date: 20051025
  Transmission Date: 20060501
  Serious: Yes (Other)
  Sender: FDA-Public Use
  Company Number: S05-USA-04514-01

PATIENT
  Age: 47 Year
  Sex: Male

DRUGS (4)
  1. LEXAPRO [Suspect]
     Indication: ANXIETY
     Dosage: 10 MG QD PO
     Route: 048
     Dates: start: 20050928, end: 20050930
  2. LEXAPRO [Suspect]
     Indication: OBSESSIVE-COMPULSIVE DISORDER
     Dosage: 10 MG QD PO
     Route: 048
     Dates: start: 20050928, end: 20050930
  3. KLONOPIN [Concomitant]
  4. DEPAKOTE [Concomitant]

REACTIONS (8)
  - ABDOMINAL PAIN UPPER [None]
  - ANXIETY [None]
  - BLOOD PRESSURE FLUCTUATION [None]
  - DIARRHOEA [None]
  - DYSPNOEA [None]
  - HEART RATE ABNORMAL [None]
  - MYDRIASIS [None]
  - VISUAL DISTURBANCE [None]
